FAERS Safety Report 21333909 (Version 1)
Quarter: 2022Q3

REPORT INFORMATION
  Report Type: Spontaneous
  Country: US (occurrence: US)
  Receive Date: 20220914
  Receipt Date: 20220914
  Transmission Date: 20221027
  Serious: No
  Sender: FDA-Public Use
  Company Number: US-MAYNE PHARMA-2022MYN000091

PATIENT
  Age: 48 Year
  Sex: Female

DRUGS (1)
  1. SOLTAMOX [Suspect]
     Active Substance: TAMOXIFEN CITRATE
     Indication: Breast cancer
     Dosage: 10 ML, QD
     Route: 048
     Dates: start: 20220304

REACTIONS (3)
  - Product use complaint [Not Recovered/Not Resolved]
  - Throat irritation [Not Recovered/Not Resolved]
  - Vomiting [Not Recovered/Not Resolved]

NARRATIVE: CASE EVENT DATE: 20220304
